FAERS Safety Report 13841410 (Version 2)
Quarter: 2017Q3

REPORT INFORMATION
  Report Type: Spontaneous
  Country: US (occurrence: US)
  Receive Date: 20170807
  Receipt Date: 20170915
  Transmission Date: 20171127
  Serious: No
  Sender: FDA-Public Use
  Company Number: PHEH2017US023629

PATIENT
  Age: 64 Year
  Sex: Female

DRUGS (1)
  1. LORATADINE TABLETS [Suspect]
     Active Substance: LORATADINE
     Indication: HYPERSENSITIVITY
     Dosage: 1 DF, QD
     Route: 048

REACTIONS (3)
  - Malaise [Recovered/Resolved]
  - Drug ineffective [Recovered/Resolved]
  - Seasonal allergy [Recovered/Resolved]
